FAERS Safety Report 6860636-5 (Version None)
Quarter: 2010Q3

REPORT INFORMATION
  Report Type: 
  Country: None (occurrence: None)
  Receive Date: 20100715
  Receipt Date: 20100630
  Transmission Date: 20110219
  Serious: Yes (Death, Hospitalization)
  Sender: FDA-Public Use
  Company Number: 2010002740

PATIENT
  Age: 47 Year
  Sex: Female

DRUGS (7)
  1. ERLOTINIB HYDROCHLORIDE [Suspect]
     Indication: PANCREATIC CARCINOMA
     Dosage: (100 MG/M2, QD), ORAL
     Route: 048
     Dates: start: 20100413, end: 20100615
  2. GEMCITABINE [Suspect]
     Indication: PANCREATIC CARCINOMA
     Dosage: (100 MG/M2), INTRAVENOUS
     Route: 042
     Dates: start: 20100413, end: 20100615
  3. ZOFRAN [Concomitant]
  4. ZANTAC 150 [Concomitant]
  5. NORCO [Concomitant]
  6. COLACE (DOCUSATE SODIUM) [Concomitant]
  7. MEGACE [Concomitant]

REACTIONS (10)
  - BLOOD ALKALINE PHOSPHATASE INCREASED [None]
  - DYSPNOEA [None]
  - GASTROINTESTINAL PERFORATION [None]
  - HYPERPYREXIA [None]
  - PCO2 DECREASED [None]
  - PNEUMOPERITONEUM [None]
  - SEPSIS [None]
  - TACHYCARDIA [None]
  - UNRESPONSIVE TO STIMULI [None]
  - WHITE BLOOD CELL COUNT DECREASED [None]
